FAERS Safety Report 15368223 (Version 2)
Quarter: 2018Q3

REPORT INFORMATION
  Report Type: Spontaneous
  Country: US (occurrence: US)
  Receive Date: 20180910
  Receipt Date: 20180917
  Transmission Date: 20181010
  Serious: Yes (Life-Threatening, Hospitalization)
  Sender: FDA-Public Use
  Company Number: US-CELGENEUS-USA-20180900329

PATIENT
  Age: 84 Year
  Sex: Female
  Weight: 60 kg

DRUGS (6)
  1. OXYGEN. [Concomitant]
     Active Substance: OXYGEN
     Indication: PRODUCT USED FOR UNKNOWN INDICATION
     Route: 065
  2. OTEZLA [Suspect]
     Active Substance: APREMILAST
     Indication: PSORIASIS
     Dosage: 60 MILLIGRAM
     Route: 048
     Dates: start: 201702
  3. CARVEDILOL. [Concomitant]
     Active Substance: CARVEDILOL
     Indication: PRODUCT USED FOR UNKNOWN INDICATION
     Route: 065
  4. XARELTO [Concomitant]
     Active Substance: RIVAROXABAN
     Indication: PRODUCT USED FOR UNKNOWN INDICATION
     Route: 065
     Dates: start: 201808
  5. OTEZLA [Suspect]
     Active Substance: APREMILAST
     Dosage: 60 MILLIGRAM
     Route: 065
     Dates: start: 20180502, end: 20180819
  6. DILTIAZEM. [Concomitant]
     Active Substance: DILTIAZEM
     Indication: PRODUCT USED FOR UNKNOWN INDICATION
     Route: 065
     Dates: start: 201808

REACTIONS (9)
  - Hallucination [Recovered/Resolved with Sequelae]
  - Gastroenteritis [Recovered/Resolved with Sequelae]
  - Pneumonia [Recovered/Resolved with Sequelae]
  - Amnesia [Recovered/Resolved with Sequelae]
  - Sepsis [Recovered/Resolved with Sequelae]
  - Urinary tract infection [Recovered/Resolved with Sequelae]
  - Brain injury [Recovered/Resolved with Sequelae]
  - Renal impairment [Recovered/Resolved with Sequelae]
  - Heart rate irregular [Recovered/Resolved with Sequelae]

NARRATIVE: CASE EVENT DATE: 201808
